FAERS Safety Report 9260711 (Version 1)
Quarter: 2013Q2

REPORT INFORMATION
  Report Type: Spontaneous
  Country: US (occurrence: US)
  Receive Date: 20130429
  Receipt Date: 20130429
  Transmission Date: 20140414
  Serious: Yes (Other)
  Sender: FDA-Public Use
  Company Number: US-PFIZER INC-2013131866

PATIENT
  Age: 72 Year
  Sex: Male

DRUGS (7)
  1. LYRICA [Suspect]
     Dosage: 100 MG, 3X/DAY
  2. PRAVASTATIN [Concomitant]
     Dosage: 40 MG, UNK
  3. VITAMIN B12 [Concomitant]
     Dosage: UNK
  4. AMLODIPINE [Concomitant]
     Dosage: 5 MG, UNK
  5. VITAMIN C [Concomitant]
     Dosage: 500 MG, UNK
  6. VITAMIN D3 [Concomitant]
     Dosage: 1000U
  7. HYDROCHLOROTHIAZIDE [Concomitant]
     Dosage: 25 MG, UNK

REACTIONS (1)
  - Lower limb fracture [Unknown]
